FAERS Safety Report 15518476 (Version 2)
Quarter: 2018Q4

REPORT INFORMATION
  Report Type: Spontaneous
  Country: BE (occurrence: BE)
  Receive Date: 20181017
  Receipt Date: 20181025
  Transmission Date: 20190205
  Serious: Yes (Hospitalization, Other)
  Sender: FDA-Public Use
  Company Number: BE-TAKEDA-2018TUS029886

PATIENT
  Age: 22 Year
  Sex: Female
  Weight: 57.5 kg

DRUGS (2)
  1. ENTYVIO [Suspect]
     Active Substance: VEDOLIZUMAB
     Indication: CROHN^S DISEASE
     Dosage: 300 MG, Q4WEEKS
     Route: 042
     Dates: start: 20150910, end: 20171207
  2. URSOFALK [Concomitant]
     Active Substance: URSODIOL
     Dosage: 250 MG, BID
     Dates: start: 201502

REACTIONS (2)
  - Pyelonephritis [Unknown]
  - Renal impairment [Recovered/Resolved]

NARRATIVE: CASE EVENT DATE: 20170620
